FAERS Safety Report 6147515-6 (Version None)
Quarter: 2009Q2

REPORT INFORMATION
  Report Type: 
  Country: None (occurrence: None)
  Receive Date: 20090408
  Receipt Date: 20090406
  Transmission Date: 20091009
  Serious: No
  Sender: FDA-Public Use
  Company Number: US-B.I. PHARMACEUTICALS,INC./RIDGEFIELD-2009-BP-02641BP

PATIENT
  Sex: Male

DRUGS (6)
  1. CATAPRES-TTS-1 [Suspect]
     Indication: HYPERTENSION
     Dosage: .2MG
     Route: 061
     Dates: start: 20080101
  2. DIOVAN [Concomitant]
     Indication: HYPERTENSION
  3. AMLLODIPINE [Concomitant]
     Indication: HYPERTENSION
  4. PRAZSOIN HCL [Concomitant]
     Indication: HYPERTENSION
  5. LORAZEPAM [Concomitant]
  6. SIMVASTATIN [Concomitant]

REACTIONS (1)
  - BLOOD PRESSURE FLUCTUATION [None]
